FAERS Safety Report 11879266 (Version 1)
Quarter: 2015Q4

REPORT INFORMATION
  Report Type: Spontaneous
  Country: US (occurrence: US)
  Receive Date: 20151230
  Receipt Date: 20151230
  Transmission Date: 20160305
  Serious: No
  Sender: FDA-Public Use
  Company Number: US-PFIZER INC-2015473143

PATIENT
  Age: 49 Year
  Sex: Female

DRUGS (1)
  1. LYRICA [Suspect]
     Active Substance: PREGABALIN
     Indication: NEURALGIA
     Dosage: 50 MG, 2X/DAY
     Route: 048
     Dates: start: 20151225, end: 20151226

REACTIONS (10)
  - Diplopia [Recovered/Resolved]
  - Pharyngeal oedema [Recovered/Resolved]
  - Vision blurred [Recovering/Resolving]
  - Dyspnoea [Recovered/Resolved]
  - Oral pain [Recovered/Resolved]
  - Pruritus [Recovering/Resolving]
  - Feeding disorder [Recovered/Resolved]
  - Mouth swelling [Recovered/Resolved]
  - Product use issue [Unknown]
  - Lip swelling [Recovering/Resolving]

NARRATIVE: CASE EVENT DATE: 20151225
